FAERS Safety Report 5671185-4 (Version None)
Quarter: 2008Q1

REPORT INFORMATION
  Report Type: 
  Country: None (occurrence: None)
  Receive Date: 20080318
  Receipt Date: 20080306
  Transmission Date: 20080703
  Serious: Yes (Hospitalization)
  Sender: FDA-Public Use
  Company Number: JP-GILEAD-2008-0015589

PATIENT
  Sex: Male

DRUGS (8)
  1. VIREAD [Suspect]
     Indication: HIV INFECTION
     Route: 048
     Dates: start: 20050330
  2. EPIVIR [Suspect]
     Indication: HIV INFECTION
     Route: 048
     Dates: start: 20050330
  3. NORVIR [Suspect]
     Indication: HIV INFECTION
     Route: 048
     Dates: start: 20050330
  4. PEGINTERFERON ALFA-2B [Suspect]
     Indication: HEPATITIS
     Route: 058
     Dates: start: 20051004, end: 20070313
  5. REYATAZ [Suspect]
     Indication: HIV INFECTION
     Route: 048
     Dates: start: 20050330
  6. RECOMBINATE [Concomitant]
     Dates: start: 20050330
  7. RIBAVIRIN [Concomitant]
     Dates: start: 20051210, end: 20070320
  8. STOGAR [Concomitant]
     Dates: start: 20051210

REACTIONS (2)
  - MELAENA [None]
  - OESOPHAGEAL VARICES HAEMORRHAGE [None]
